FAERS Safety Report 8116811-5 (Version None)
Quarter: 2012Q1

REPORT INFORMATION
  Report Type: 
  Country: None (occurrence: None)
  Receive Date: 20120206
  Receipt Date: 20120206
  Transmission Date: 20120608
  Serious: Yes (Death, Hospitalization)
  Sender: FDA-Public Use
  Company Number: PHHY2011AU105007

PATIENT
  Sex: Male

DRUGS (2)
  1. PANTOPRAZOLE [Concomitant]
     Dosage: 40 MG, UNK
     Dates: start: 20101216
  2. CLOZARIL [Suspect]
     Dosage: 400 MG
     Dates: start: 20091001

REACTIONS (5)
  - MALAISE [None]
  - GASTROOESOPHAGEAL REFLUX DISEASE [None]
  - SMALL CELL LUNG CANCER STAGE UNSPECIFIED [None]
  - LUNG NEOPLASM [None]
  - ELECTROCARDIOGRAM QT PROLONGED [None]
